FAERS Safety Report 7327783-5 (Version None)
Quarter: 2011Q1

REPORT INFORMATION
  Report Type: 
  Country: None (occurrence: None)
  Receive Date: 20110216
  Receipt Date: 20110209
  Transmission Date: 20110831
  Serious: Yes (Other)
  Sender: FDA-Public Use
  Company Number: DSA_44928_2011

PATIENT
  Sex: Female
  Weight: 73.9 kg

DRUGS (4)
  1. LEXAPRO [Suspect]
     Indication: DEPRESSION
     Dosage: 20 MG, QD, ORAL
     Route: 048
     Dates: start: 20050101
  2. WELLBUTRIN [Suspect]
     Indication: DEPRESSION
     Dosage: DF
     Dates: end: 20100601
  3. TRAZODONE [Concomitant]
  4. TOPAMAX [Concomitant]

REACTIONS (4)
  - SUICIDAL IDEATION [None]
  - DRUG INEFFECTIVE [None]
  - BIPOLAR DISORDER [None]
  - CRYING [None]
